FAERS Safety Report 7198571-8 (Version None)
Quarter: 2010Q4

REPORT INFORMATION
  Report Type: 
  Country: None (occurrence: None)
  Receive Date: 20101227
  Receipt Date: 20101217
  Transmission Date: 20110411
  Serious: Yes (Other)
  Sender: FDA-Public Use
  Company Number: IT-JNJFOC-20101206876

PATIENT
  Age: 2 Year
  Sex: Female

DRUGS (1)
  1. HALDOL [Suspect]
     Indication: ACCIDENTAL EXPOSURE
     Route: 048

REACTIONS (6)
  - ACCIDENTAL EXPOSURE [None]
  - AGITATION [None]
  - CONDUCTION DISORDER [None]
  - OCULOGYRIC CRISIS [None]
  - SLUGGISHNESS [None]
  - TACHYCARDIA [None]
